FAERS Safety Report 18947456 (Version 5)
Quarter: 2021Q2

REPORT INFORMATION
  Report Type: Spontaneous
  Country: US (occurrence: US)
  Receive Date: 20210226
  Receipt Date: 20210413
  Transmission Date: 20210717
  Serious: No
  Sender: FDA-Public Use
  Company Number: US-BIOGEN-2021BI00982475

PATIENT

DRUGS (1)
  1. TYSABRI [Suspect]
     Active Substance: NATALIZUMAB
     Indication: PRODUCT USED FOR UNKNOWN INDICATION
     Dosage: 6 INFUSIONS
     Route: 065
     Dates: start: 20200825, end: 20210202

REACTIONS (3)
  - Speech disorder [Unknown]
  - Magnetic resonance imaging abnormal [Unknown]
  - Cognitive disorder [Unknown]
